FAERS Safety Report 16190903 (Version 1)
Quarter: 2019Q2

REPORT INFORMATION
  Report Type: Spontaneous
  Country: US (occurrence: US)
  Receive Date: 20190412
  Receipt Date: 20190412
  Transmission Date: 20190711
  Serious: Yes (Hospitalization)
  Sender: FDA-Public Use
  Company Number: US-UPSHER-SMITH LABORATORIES, LLC-2019USL00132

PATIENT
  Sex: Female
  Weight: 37.42 kg

DRUGS (3)
  1. CARAFATE [Concomitant]
     Active Substance: SUCRALFATE
  2. KLOR-CON [Suspect]
     Active Substance: POTASSIUM CHLORIDE
     Indication: BLOOD POTASSIUM DECREASED
     Dosage: 20 MG OR 20 MCG
  3. LIBRAX [Concomitant]
     Active Substance: CHLORDIAZEPOXIDE HYDROCHLORIDE\CLIDINIUM BROMIDE

REACTIONS (4)
  - Abdominal discomfort [Recovered/Resolved]
  - Nausea [Unknown]
  - Vomiting [Unknown]
  - Malaise [Recovered/Resolved]
